FAERS Safety Report 8388461-7 (Version None)
Quarter: 2012Q2

REPORT INFORMATION
  Report Type: 
  Country: None (occurrence: None)
  Receive Date: 20120525
  Receipt Date: 20120515
  Transmission Date: 20120825
  Serious: No
  Sender: FDA-Public Use
  Company Number: US-ASTRAZENECA-2012SE24869

PATIENT
  Age: 16 Year
  Sex: Male

DRUGS (2)
  1. CAPRELSA [Suspect]
     Indication: THYROID CANCER
     Route: 048
  2. CAPRELSA [Suspect]
     Indication: PARAGANGLION NEOPLASM
     Route: 048

REACTIONS (3)
  - HEADACHE [None]
  - DIARRHOEA [None]
  - OFF LABEL USE [None]
